FAERS Safety Report 7294873-5 (Version None)
Quarter: 2011Q1

REPORT INFORMATION
  Report Type: 
  Country: None (occurrence: None)
  Receive Date: 20110216
  Receipt Date: 20110207
  Transmission Date: 20110831
  Serious: Yes (Hospitalization)
  Sender: FDA-Public Use
  Company Number: IT-JNJFOC-20110202702

PATIENT
  Sex: Male

DRUGS (1)
  1. SERENASE [Suspect]
     Indication: PRODUCT USED FOR UNKNOWN INDICATION
     Route: 048

REACTIONS (6)
  - BLOOD CREATINE PHOSPHOKINASE INCREASED [None]
  - VERTIGO [None]
  - SELF-MEDICATION [None]
  - DYSPNOEA [None]
  - AGITATION [None]
  - JOINT HYPEREXTENSION [None]
